FAERS Safety Report 4454960-3 (Version None)
Quarter: 2004Q3

REPORT INFORMATION
  Report Type: 
  Country: None (occurrence: None)
  Receive Date: 20040824
  Receipt Date: 20040517
  Transmission Date: 20050211
  Serious: No
  Sender: FDA-Public Use
  Company Number: SU-2004-002370

PATIENT
  Age: 56 Year
  Sex: Male
  Weight: 100.2449 kg

DRUGS (4)
  1. BENICAR [Suspect]
     Indication: HYPERTENSION
     Dosage: 20 MG QD PO
     Route: 048
     Dates: start: 20031101, end: 20040421
  2. PAXIL [Concomitant]
  3. GLUCOPHAGE [Concomitant]
  4. GLUCOTROL [Concomitant]

REACTIONS (5)
  - BACK PAIN [None]
  - DEPRESSION [None]
  - FATIGUE [None]
  - GLYCOSYLATED HAEMOGLOBIN INCREASED [None]
  - SUICIDAL IDEATION [None]
